FAERS Safety Report 19457030 (Version 1)
Quarter: 2021Q2

REPORT INFORMATION
  Report Type: Spontaneous
  Country: US (occurrence: US)
  Receive Date: 20210624
  Receipt Date: 20210624
  Transmission Date: 20210717
  Serious: No
  Sender: FDA-Public Use
  Company Number: US-009507513-2106USA005926

PATIENT
  Sex: Female
  Weight: 96.6 kg

DRUGS (4)
  1. IMODIUM [Concomitant]
     Active Substance: LOPERAMIDE HYDROCHLORIDE
     Dosage: UNK
  2. IBUPROFEN. [Concomitant]
     Active Substance: IBUPROFEN
     Dosage: UNK
  3. LENVATINIB MESYLATE [Suspect]
     Active Substance: LENVATINIB MESYLATE
     Indication: ENDOMETRIAL CANCER
     Dosage: 3X4MG DAILY
     Route: 048
     Dates: start: 20210423
  4. KEYTRUDA [Suspect]
     Active Substance: PEMBROLIZUMAB
     Dosage: UNK

REACTIONS (11)
  - Toothache [Unknown]
  - Carbon dioxide decreased [Unknown]
  - Blood pressure increased [Unknown]
  - Pain [Unknown]
  - Arthralgia [Unknown]
  - Rash macular [Unknown]
  - Fatigue [Unknown]
  - Heat exhaustion [Unknown]
  - Dehydration [Unknown]
  - Blood bilirubin increased [Unknown]
  - Abdominal discomfort [Unknown]

NARRATIVE: CASE EVENT DATE: 20210603
